FAERS Safety Report 8994779 (Version 1)
Quarter: 2012Q4

REPORT INFORMATION
  Report Type: Spontaneous
  Country: US (occurrence: None)
  Receive Date: 20121228
  Receipt Date: 20121228
  Transmission Date: 20130627
  Serious: Yes (Hospitalization)
  Sender: FDA-Public Use
  Company Number: None

PATIENT
  Sex: Male
  Weight: 99.79 kg

DRUGS (2)
  1. XARELTO [Suspect]
     Indication: AFIB
     Dosage: 20mg 1
     Dates: start: 20120701, end: 20121110
  2. XARELTO [Suspect]
     Indication: ANTICOAGULANT THERAPY
     Dosage: 20mg 1
     Dates: start: 20120701, end: 20121110

REACTIONS (1)
  - Rectal haemorrhage [None]
